FAERS Safety Report 8917164 (Version 2)
Quarter: 2013Q2

REPORT INFORMATION
  Report Type: Report from Study
  Country: US (occurrence: US)
  Receive Date: 20121120
  Receipt Date: 20130501
  Transmission Date: 20140414
  Serious: Yes (Hospitalization, Other)
  Sender: FDA-Public Use
  Company Number: US-BAXTER-2012BAX023680

PATIENT
  Age: 1 Year
  Sex: Male
  Weight: 12.9 kg

DRUGS (4)
  1. ADVATE [Suspect]
     Indication: FACTOR VIII DEFICIENCY
     Route: 042
     Dates: start: 20121016, end: 20121016
  2. ADVATE [Suspect]
     Indication: PROPHYLAXIS
     Route: 042
     Dates: start: 20121022, end: 20121029
  3. ADVATE [Suspect]
     Route: 042
     Dates: start: 20121102, end: 20121102
  4. MULTI-VITAMINS [Concomitant]
     Indication: PRODUCT USED FOR UNKNOWN INDICATION

REACTIONS (1)
  - Haemorrhage [Recovered/Resolved]
